FAERS Safety Report 4630455-9 (Version None)
Quarter: 2005Q2

REPORT INFORMATION
  Report Type: 
  Country: None (occurrence: None)
  Receive Date: 20050406
  Receipt Date: 20050322
  Transmission Date: 20051028
  Serious: Yes (Other)
  Sender: FDA-Public Use
  Company Number: USA050291051

PATIENT
  Age: 62 Year
  Sex: Female

DRUGS (3)
  1. FORTEO [Suspect]
     Indication: OSTEOPOROSIS
     Dates: start: 20030401
  2. FOSAMAX [Concomitant]
  3. VITAMINS NOS [Concomitant]

REACTIONS (2)
  - ACCIDENT [None]
  - PHARMACEUTICAL PRODUCT COMPLAINT [None]
